FAERS Safety Report 22322828 (Version 4)
Quarter: 2024Q1

REPORT INFORMATION
  Report Type: Spontaneous
  Country: ES (occurrence: ES)
  Receive Date: 20230516
  Receipt Date: 20240116
  Transmission Date: 20240409
  Serious: Yes (Other)
  Sender: FDA-Public Use
  Company Number: ES-AUROBINDO-AUR-APL-2023-036032

PATIENT
  Age: 62 Year
  Sex: Female
  Weight: 90 kg

DRUGS (29)
  1. ALPRAZOLAM [Interacting]
     Active Substance: ALPRAZOLAM
     Indication: Personality disorder
     Dosage: 0.5 MILLIGRAM, ONCE A DAY
     Route: 065
  2. GABAPENTIN [Interacting]
     Active Substance: GABAPENTIN
     Indication: Arthralgia
     Dosage: 300 MILLIGRAM, 3 TIMES A DAY (1-1-1-0)
     Route: 065
  3. QUETIAPINE [Interacting]
     Active Substance: QUETIAPINE
     Indication: Personality disorder
     Dosage: 400 MILLIGRAM, ONCE A DAY (0-0-1-0))
     Route: 065
  4. KETAZOLAM [Interacting]
     Active Substance: KETAZOLAM
     Indication: Hallucination
     Dosage: 15 MILLIGRAM, ONCE A DAY (0-0-0-1)
     Route: 065
  5. LORMETAZEPAM [Interacting]
     Active Substance: LORMETAZEPAM
     Indication: Product used for unknown indication
     Dosage: 2 MILLIGRAM (0-0-0-1)
     Route: 065
  6. PIMOZIDE [Interacting]
     Active Substance: PIMOZIDE
     Indication: Personality disorder
     Dosage: 1 MILLIGRAM, ONCE A DAY (0-0-1-0)
     Route: 065
  7. EMPAGLIFLOZIN\METFORMIN HYDROCHLORIDE [Concomitant]
     Active Substance: EMPAGLIFLOZIN\METFORMIN HYDROCHLORIDE
     Indication: Diabetes mellitus
     Dosage: 1000 MG/5 MG (1-0-1-0), TWO TIMES A DAY
     Route: 065
  8. LIRAGLUTIDE [Concomitant]
     Active Substance: LIRAGLUTIDE
     Indication: Diabetes mellitus
     Dosage: 6 MILLIGRAM/MILILITER (USED DOSAGE OF 1 EVERY 7 DAYS)
     Route: 065
  9. VALSARTAN [Concomitant]
     Active Substance: VALSARTAN
     Indication: Hypertension
     Dosage: 320 MILLIGRAM, ONCE A DAY (1-0-0-0),
     Route: 065
     Dates: start: 2014
  10. MANIDIPINE [Concomitant]
     Active Substance: MANIDIPINE
     Indication: Hypertension
     Dosage: 10 MILLIGRAM (0-0-2-0)
     Route: 065
     Dates: start: 2014
  11. FUROSEMIDE [Concomitant]
     Active Substance: FUROSEMIDE
     Indication: Hypertension
     Dosage: 40 MILLIGRAM (1-0.5-0-0)
     Route: 065
     Dates: start: 2014
  12. ATORVASTATIN [Concomitant]
     Active Substance: ATORVASTATIN
     Indication: Hypercholesterolaemia
     Dosage: 40 MILLIGRAM, ONCE A DAY (0-0-1-0)
     Route: 065
     Dates: start: 2015
  13. AMISULPRIDE [Concomitant]
     Active Substance: AMISULPRIDE
     Indication: Personality disorder
     Dosage: 100 MILLIGRAM (0-0-0-0.5)
     Route: 065
  14. VORTIOXETINE [Concomitant]
     Active Substance: VORTIOXETINE
     Indication: Personality disorder
     Dosage: 15 MILLIGRAM, ONCE A DAY (1-0-0-0)
     Route: 065
  15. CLOPIDOGREL [Concomitant]
     Active Substance: CLOPIDOGREL BISULFATE
     Indication: Cerebrovascular accident
     Dosage: 75 MILLIGRAM, ONCE A DAY (0-1-0-0)
     Route: 065
  16. PANTOPRAZOLE [Concomitant]
     Active Substance: PANTOPRAZOLE
     Indication: Gastrooesophageal reflux disease
     Dosage: 40 MILLIGRAM, ONCE A DAY (1-0-0-0)
     Route: 065
  17. CALCIFEDIOL [Concomitant]
     Active Substance: CALCIFEDIOL
     Indication: Vitamin D deficiency
     Dosage: 0.266 MILLIGRAM (1 UD /MONTH)
     Route: 065
  18. CALCIFEDIOL [Concomitant]
     Active Substance: CALCIFEDIOL
     Dosage: 0.27 MILLIGRAM (USED DOSAGE OF ONE EVERY MONTH)
     Dates: start: 2021
  19. ACETAMINOPHEN\TRAMADOL [Concomitant]
     Active Substance: ACETAMINOPHEN\TRAMADOL
     Indication: Arthralgia
     Dosage: 75 MG/650 MG, 3 TIMES A DAY
     Route: 065
  20. PRAMIPEXOLE [Concomitant]
     Active Substance: PRAMIPEXOLE\PRAMIPEXOLE DIHYDROCHLORIDE
     Indication: Tremor
     Dosage: 1.05 MILLIGRAM, ONCE A DAY (USED DOSAGE OF 1-0-0-0)
     Route: 065
  21. TRAMADOL [Concomitant]
     Active Substance: TRAMADOL\TRAMADOL HYDROCHLORIDE
     Indication: Arthralgia
     Dosage: 100 MILLIGRAM/MILILITER (ON DEMAND)
     Route: 065
     Dates: start: 2019
  22. TRAMADOL [Concomitant]
     Active Substance: TRAMADOL\TRAMADOL HYDROCHLORIDE
     Dosage: 75 MILLIGRAM, 3 TIMES A DAY(USED DOSAGE OF 1-1-1-0))
     Dates: start: 2019
  23. ALBUTEROL [Concomitant]
     Active Substance: ALBUTEROL
     Indication: Chronic obstructive pulmonary disease
     Dosage: 100 MICROGRAM (?G/PUL)
     Route: 065
     Dates: start: 2016
  24. GLYCOPYRRONIUM\INDACATEROL [Concomitant]
     Active Substance: GLYCOPYRRONIUM\INDACATEROL
     Indication: Chronic obstructive pulmonary disease
     Dosage: 85 ?G/43 ?G (1 UD/24H)
     Route: 065
  25. ACETAMINOPHEN [Concomitant]
     Active Substance: ACETAMINOPHEN
     Indication: Arthralgia
     Dosage: 650 MILLIGRAM (USED DOSAGE OF 1-1-1-0)
     Route: 065
     Dates: start: 2019
  26. EMPAGLIFLOZIN [Concomitant]
     Active Substance: EMPAGLIFLOZIN
     Indication: Diabetes mellitus
     Dosage: 5 MILLIGRAM, TWO TIMES A DAY(USED DOSAGE OF 1-0-1-0)
     Route: 065
     Dates: start: 2010
  27. METFORMIN [Concomitant]
     Active Substance: METFORMIN HYDROCHLORIDE
     Indication: Diabetes mellitus
     Dosage: 1000 MILLIGRAM, TWO TIMES A DAY (USED DOSAGE OF 1-0-1-0)
     Dates: start: 2010
  28. INDACATEROL [Suspect]
     Active Substance: INDACATEROL
     Indication: Chronic obstructive pulmonary disease
     Dosage: 85 MICROGRAM, ONCE A DAY(AT A DOSAGE OF 1 EVERY 24 HOURS)
     Route: 065
     Dates: start: 2016
  29. GLYCOPYRROLATE [Concomitant]
     Active Substance: GLYCOPYRROLATE
     Indication: Chronic obstructive pulmonary disease
     Dosage: 43 MICROGRAM, ONCE A DAY (AT A DOSAGE OF 1 EVERY 24 HOURS)
     Route: 065
     Dates: start: 2016

REACTIONS (7)
  - Drug interaction [Unknown]
  - Parkinsonism [Recovered/Resolved]
  - Hypotension [Recovered/Resolved]
  - Hallucination [Recovered/Resolved]
  - Hypoglycaemia [Recovered/Resolved]
  - Somnolence [Recovered/Resolved]
  - Off label use [Unknown]
